FAERS Safety Report 6954931-9 (Version None)
Quarter: 2010Q3

REPORT INFORMATION
  Report Type: 
  Country: None (occurrence: None)
  Receive Date: 20100830
  Receipt Date: 20100817
  Transmission Date: 20110219
  Serious: Yes (Disabling)
  Sender: FDA-Public Use
  Company Number: PHFR2010GB02473

PATIENT
  Age: 65 Year
  Sex: Female

DRUGS (3)
  1. ZOMETA [Suspect]
     Indication: BREAST CANCER METASTATIC
     Dosage: 4 MG, UNK
     Route: 042
     Dates: start: 20070608
  2. MATRIFEN [Concomitant]
     Route: 061
  3. ORAMORPH SR [Concomitant]

REACTIONS (1)
  - OSTEONECROSIS OF JAW [None]
